FAERS Safety Report 5828511-2 (Version None)
Quarter: 2008Q3

REPORT INFORMATION
  Report Type: 
  Country: None (occurrence: None)
  Receive Date: 20080729
  Receipt Date: 20080717
  Transmission Date: 20090109
  Serious: Yes (Hospitalization)
  Sender: FDA-Public Use
  Company Number: 08P-062-0464117-00

PATIENT
  Age: 8 Month
  Sex: Male

DRUGS (2)
  1. SYNAGIS [Suspect]
     Indication: IMMUNISATION
  2. SYNAGIS [Suspect]
     Indication: RESPIRATORY SYNCYTIAL VIRUS INFECTION

REACTIONS (1)
  - ATRIAL SEPTAL DEFECT [None]
